FAERS Safety Report 6847659-7 (Version None)
Quarter: 2010Q3

REPORT INFORMATION
  Report Type: 
  Country: None (occurrence: None)
  Receive Date: 20100716
  Receipt Date: 20100705
  Transmission Date: 20110219
  Serious: Yes (Hospitalization)
  Sender: FDA-Public Use
  Company Number: PHHY2010FR44622

PATIENT
  Sex: Female

DRUGS (6)
  1. LEPONEX [Suspect]
     Dosage: 50 TO 75 MG, DAILY
     Dates: start: 20100511, end: 20100518
  2. ESCITALOPRAM [Concomitant]
     Dosage: 15 MG, QD
  3. ESCITALOPRAM [Concomitant]
     Dosage: UNK
     Dates: start: 20100518
  4. LITHIUM CARBONATE [Concomitant]
     Dosage: 400 MG, BID
     Dates: start: 20091106, end: 20100518
  5. DEPAKOTE [Concomitant]
     Dosage: 2500 MG, QD
     Dates: end: 20100518
  6. ABILIFY [Concomitant]
     Dosage: 20 MG, QD

REACTIONS (10)
  - ALANINE AMINOTRANSFERASE INCREASED [None]
  - ASPARTATE AMINOTRANSFERASE INCREASED [None]
  - BLOOD CREATINE PHOSPHOKINASE INCREASED [None]
  - C-REACTIVE PROTEIN INCREASED [None]
  - LEUKOCYTOSIS [None]
  - LIVER DISORDER [None]
  - MUSCULOSKELETAL STIFFNESS [None]
  - NEUROLEPTIC MALIGNANT SYNDROME [None]
  - NEUTROPHIL COUNT INCREASED [None]
  - PYREXIA [None]
